FAERS Safety Report 4497548-0 (Version None)
Quarter: 2004Q4

REPORT INFORMATION
  Report Type: 
  Country: None (occurrence: None)
  Receive Date: 20041104
  Receipt Date: 20041019
  Transmission Date: 20050328
  Serious: Yes (Hospitalization)
  Sender: FDA-Public Use
  Company Number: A0530990A

PATIENT
  Age: 65 Year
  Sex: Female
  Weight: 38.5104 kg

DRUGS (6)
  1. NICODERM CQ [Suspect]
     Indication: EX-SMOKER
     Dosage: 14 MG TRANSDERMAL
     Route: 062
     Dates: start: 20020101
  2. NICORETTE [Suspect]
     Indication: EX-SMOKER
     Dosage: 4 MG / TRANSBUCCAL
     Route: 002
     Dates: start: 20020101
  3. LEVALBUTEROL HYDROCHLORIDE [Concomitant]
  4. COMBIVENT [Concomitant]
  5. BECLOMETHASONE DIPROPIONATE [Concomitant]
  6. OXYGEN [Concomitant]

REACTIONS (5)
  - CONTUSION [None]
  - FALL [None]
  - GAIT DISTURBANCE [None]
  - HYPERTENSION [None]
  - MEDICATION ERROR [None]
